FAERS Safety Report 13664226 (Version 1)
Quarter: 2017Q2

REPORT INFORMATION
  Report Type: Spontaneous
  Country: US (occurrence: US)
  Receive Date: 20170619
  Receipt Date: 20170619
  Transmission Date: 20170830
  Serious: Yes (Hospitalization)
  Sender: FDA-Public Use
  Company Number: US-B.I. PHARMACEUTICALS,INC./RIDGEFIELD-2017-BI-033728

PATIENT
  Sex: Female

DRUGS (8)
  1. CELEXA [Concomitant]
     Active Substance: CITALOPRAM HYDROBROMIDE
     Indication: ANXIETY
     Route: 048
  2. CIPRO [Concomitant]
     Active Substance: CIPROFLOXACIN HYDROCHLORIDE
     Indication: PRODUCT USED FOR UNKNOWN INDICATION
     Route: 048
     Dates: start: 20140707, end: 20140717
  3. DIPHENOXYLATE-ATROPINE (LOMOTIL) [Concomitant]
     Indication: DIARRHOEA
     Dosage: STRENGTH: 2.5-0.025 MG; DAILY DOSE: 1 TABLET A DAY AS NEEDED
     Route: 048
  4. PRADAXA [Suspect]
     Active Substance: DABIGATRAN ETEXILATE MESYLATE
     Indication: PRODUCT USED FOR UNKNOWN INDICATION
     Route: 048
  5. DOBETASOL (TEMOVATE) [Concomitant]
     Indication: RASH
     Dosage: STRENGTH: 0.05 %; DAILY DOSE: APPLY 1 APPLICATION TWO TIMES A DAY AS NEEDED
     Route: 061
     Dates: start: 20140424
  6. CARVEDILOL (COREG) [Concomitant]
     Indication: CARDIAC DISORDER
  7. CARVEDILOL (COREG) [Concomitant]
     Indication: BLOOD PRESSURE MEASUREMENT
     Route: 048
     Dates: start: 20140508, end: 20150508
  8. CELEXA [Concomitant]
     Active Substance: CITALOPRAM HYDROBROMIDE
     Indication: DEPRESSION

REACTIONS (1)
  - Gastrointestinal haemorrhage [Recovered/Resolved]
